FAERS Safety Report 17352294 (Version 4)
Quarter: 2020Q1

REPORT INFORMATION
  Report Type: Spontaneous
  Country: JP (occurrence: JP)
  Receive Date: 20200130
  Receipt Date: 20200330
  Transmission Date: 20200409
  Serious: Yes (Hospitalization, Other)
  Sender: FDA-Public Use
  Company Number: JP-AMGEN-JPNSP2020015289

PATIENT
  Age: 56 Year
  Sex: Female

DRUGS (22)
  1. G-LASTA [Suspect]
     Active Substance: PEGFILGRASTIM
     Dosage: 3.6 MILLIGRAM
     Route: 058
     Dates: start: 20200108, end: 20200108
  2. DOCETAXEL. [Concomitant]
     Active Substance: DOCETAXEL
     Dosage: 120 MG
     Route: 041
     Dates: start: 20200106, end: 20200106
  3. CELESTAMINE [Concomitant]
     Active Substance: BETAMETHASONE\DEXCHLORPHENIRAMINE MALEATE
     Indication: NASOPHARYNGITIS
  4. FOSMICIN [FOSFOMYCIN CALCIUM] [Concomitant]
     Indication: NASOPHARYNGITIS
  5. ENDOXAN [CYCLOPHOSPHAMIDE] [Concomitant]
     Active Substance: CYCLOPHOSPHAMIDE
     Indication: BREAST CANCER
     Dosage: 1000 MG
     Route: 041
     Dates: start: 20191206, end: 20191206
  6. FOSMICIN [FOSFOMYCIN CALCIUM] [Concomitant]
     Indication: ENTEROCOLITIS
     Dosage: 10500 MILLIGRAM
  7. BIO-THREE [Concomitant]
     Active Substance: HERBALS
     Indication: NASOPHARYNGITIS
  8. NEXIUM [Concomitant]
     Active Substance: ESOMEPRAZOLE MAGNESIUM
     Indication: ABDOMINAL PAIN UPPER
  9. ZOSYN [Concomitant]
     Active Substance: PIPERACILLIN SODIUM\TAZOBACTAM SODIUM
     Indication: FEBRILE NEUTROPENIA
     Dosage: 4.5 G, TID
     Route: 041
     Dates: start: 20200118, end: 20200122
  10. LOXOPROFEN NA [Concomitant]
     Active Substance: LOXOPROFEN SODIUM
     Indication: PROCEDURAL PAIN
  11. BIO-THREE [Concomitant]
     Active Substance: HERBALS
     Indication: NASOPHARYNGITIS
     Dosage: UNK
  12. DOCETAXEL. [Concomitant]
     Active Substance: DOCETAXEL
     Indication: BREAST CANCER
     Dosage: 120 MG
     Route: 041
     Dates: start: 20191206, end: 20191206
  13. ENDOXAN [CYCLOPHOSPHAMIDE] [Concomitant]
     Active Substance: CYCLOPHOSPHAMIDE
     Dosage: 1000 MG
     Route: 041
     Dates: start: 20200106, end: 20200106
  14. LOXOPROFEN NA [Concomitant]
     Active Substance: LOXOPROFEN SODIUM
     Indication: PROCEDURAL PAIN
     Dosage: 60 MG
     Route: 048
     Dates: start: 20191118, end: 20191206
  15. CELESTAMINE [Concomitant]
     Active Substance: BETAMETHASONE\DEXCHLORPHENIRAMINE MALEATE
     Indication: NASOPHARYNGITIS
     Dosage: UNK, QID
     Route: 048
     Dates: start: 20191214, end: 20191220
  16. NEXIUM [Concomitant]
     Active Substance: ESOMEPRAZOLE MAGNESIUM
     Indication: ABDOMINAL PAIN UPPER
     Dosage: 20 MG, QD
     Route: 048
     Dates: start: 20200115
  17. G-LASTA [Suspect]
     Active Substance: PEGFILGRASTIM
     Indication: COLONY STIMULATING FACTOR THERAPY
     Dosage: 3.6 MILLIGRAM
     Route: 058
     Dates: start: 20191207, end: 20191207
  18. FOSMICIN [FOSFOMYCIN CALCIUM] [Concomitant]
     Indication: NASOPHARYNGITIS
     Dosage: 500 MG, TID
     Route: 048
     Dates: start: 20191214, end: 20191220
  19. MYSLEE [Concomitant]
     Active Substance: ZOLPIDEM TARTRATE
     Indication: INSOMNIA
  20. CELESTAMINE [Concomitant]
     Active Substance: BETAMETHASONE\DEXCHLORPHENIRAMINE MALEATE
     Indication: ENTEROCOLITIS
     Dosage: UNK
  21. BIO-THREE [Concomitant]
     Active Substance: HERBALS
     Indication: ENTEROCOLITIS
     Dosage: UNK, TID
     Route: 048
     Dates: start: 20191214, end: 20191220
  22. MYSLEE [Concomitant]
     Active Substance: ZOLPIDEM TARTRATE
     Indication: INSOMNIA
     Dosage: 5 MG, QD
     Route: 048
     Dates: start: 20191226

REACTIONS (6)
  - Back pain [Recovering/Resolving]
  - Aortitis [Recovering/Resolving]
  - Cough [Recovering/Resolving]
  - Dyspnoea [Recovering/Resolving]
  - Pyrexia [Recovering/Resolving]
  - Febrile neutropenia [Recovered/Resolved]

NARRATIVE: CASE EVENT DATE: 20191211
